FAERS Safety Report 4928378-0 (Version None)
Quarter: 2006Q1

REPORT INFORMATION
  Report Type: 
  Country: None (occurrence: None)
  Receive Date: 20060228
  Receipt Date: 20050414
  Transmission Date: 20060701
  Serious: Yes (Hospitalization)
  Sender: FDA-Public Use
  Company Number: US-MERCK-0504USA02477

PATIENT
  Age: 52 Year
  Sex: Male
  Weight: 89 kg

DRUGS (5)
  1. VIOXX [Suspect]
     Indication: ARTHRITIS
     Route: 048
     Dates: end: 20040101
  2. VIOXX [Suspect]
     Route: 048
     Dates: end: 20040101
  3. VIOXX [Suspect]
     Indication: PAIN
     Route: 048
     Dates: end: 20040101
  4. VIOXX [Suspect]
     Route: 048
     Dates: end: 20040101
  5. IBUPROFEN [Concomitant]
     Route: 065

REACTIONS (5)
  - ANGINA PECTORIS [None]
  - ASTHMA [None]
  - CHEST PAIN [None]
  - CORONARY ARTERY DISEASE [None]
  - WEIGHT INCREASED [None]
